FAERS Safety Report 7212464-9 (Version None)
Quarter: 2010Q4

REPORT INFORMATION
  Report Type: 
  Country: None (occurrence: None)
  Receive Date: 20101228
  Receipt Date: 20101215
  Transmission Date: 20110411
  Serious: Yes (Hospitalization, Other)
  Sender: FDA-Public Use
  Company Number: 023892

PATIENT
  Age: 62 Year
  Sex: Female
  Weight: 68 kg

DRUGS (18)
  1. LORTAB [Suspect]
     Dosage: 4 HYDROCODONE/ACETAMINOPHEN
  2. PRISTIQ [Suspect]
     Indication: DEPRESSION
     Dosage: 50 MG QD; 100 MG QD
     Dates: start: 20100801, end: 20100901
  3. PRISTIQ [Suspect]
     Indication: DEPRESSION
     Dosage: 50 MG QD; 100 MG QD
     Dates: start: 20100901, end: 20101005
  4. XANAX [Suspect]
     Indication: ANXIETY
     Dosage: 0.25 MG TID, 80 ALPRAZOLAM, ORAL
     Route: 048
     Dates: start: 20100927
  5. CALCIUM [Concomitant]
  6. ASPIRINA BAYER [Concomitant]
  7. CRESTOR /0158601/ [Concomitant]
  8. SYMICORT [Concomitant]
  9. MULTI-VITAMINS [Concomitant]
  10. VITAMIN B 12 LICHTENSTEIN [Concomitant]
  11. PLAVIX [Concomitant]
  12. LISINOPRIL [Concomitant]
  13. BONIVA [Concomitant]
  14. DESYREL [Concomitant]
  15. CELEX /00582602 [Concomitant]
  16. LAMICTAL [Concomitant]
  17. TYLENOL-500 [Concomitant]
  18. SYNTHROID [Concomitant]

REACTIONS (19)
  - ANXIETY [None]
  - BLOOD POTASSIUM DECREASED [None]
  - CONDITION AGGRAVATED [None]
  - DEHYDRATION [None]
  - DEPRESSION [None]
  - EXPRESSIVE LANGUAGE DISORDER [None]
  - FEAR [None]
  - HEART RATE INCREASED [None]
  - HYPOVENTILATION [None]
  - IMPAIRED DRIVING ABILITY [None]
  - IMPAIRED WORK ABILITY [None]
  - LOSS OF CONSCIOUSNESS [None]
  - MAJOR DEPRESSION [None]
  - MEMORY IMPAIRMENT [None]
  - MULTIPLE DRUG OVERDOSE [None]
  - PANIC ATTACK [None]
  - SOMNOLENCE [None]
  - SUICIDE ATTEMPT [None]
  - THINKING ABNORMAL [None]
